FAERS Safety Report 8964255 (Version 1)
Quarter: 2012Q4

REPORT INFORMATION
  Report Type: 
  Country: US (occurrence: US)
  Receive Date: 20121214
  Receipt Date: 20121214
  Transmission Date: 20130627
  Serious: No
  Sender: FDA-Public Use
  Company Number: US-GLAXOSMITHKLINE-A0953023A

PATIENT
  Age: 68 Year
  Sex: Male

DRUGS (4)
  1. AVODART [Suspect]
     Indication: BENIGN PROSTATIC HYPERPLASIA
     Dosage: 1CAP Weekly
     Route: 048
     Dates: start: 201102
  2. UROXATRAL [Concomitant]
  3. PRILOSEC [Concomitant]
  4. LOVASTATIN [Concomitant]

REACTIONS (1)
  - Drug ineffective [Unknown]
